FAERS Safety Report 7991430-X (Version None)
Quarter: 2011Q4

REPORT INFORMATION
  Report Type: 
  Country: None (occurrence: None)
  Receive Date: 20111219
  Receipt Date: 20111219
  Transmission Date: 20120403
  Serious: Yes (Other)
  Sender: FDA-Public Use
  Company Number: US-AMGEN-USASP2011065639

PATIENT
  Sex: Male

DRUGS (7)
  1. EPOGEN [Suspect]
     Dosage: UNK
  2. EPOGEN [Suspect]
     Indication: RENAL FAILURE CHRONIC
     Dosage: 15000 IU, 3 TIMES/WK
  3. ARANESP [Suspect]
     Indication: RENAL FAILURE CHRONIC
     Dosage: 300 MUG, Q2WK
     Dates: start: 20111010, end: 20111205
  4. FERRLECIT [Concomitant]
     Dosage: UNK
  5. BACTRIM [Concomitant]
  6. FOSRENOL [Concomitant]
  7. HECTOROL [Concomitant]
     Dosage: UNK

REACTIONS (3)
  - ANTI-ERYTHROPOIETIN ANTIBODY POSITIVE [None]
  - DRUG INEFFECTIVE [None]
  - HAEMOGLOBIN DECREASED [None]
